FAERS Safety Report 7353990-1 (Version None)
Quarter: 2011Q1

REPORT INFORMATION
  Report Type: 
  Country: None (occurrence: None)
  Receive Date: 20110315
  Receipt Date: 20110214
  Transmission Date: 20110831
  Serious: No
  Sender: FDA-Public Use
  Company Number: US-BAYER-2011-014963

PATIENT
  Sex: Female
  Weight: 60.771 kg

DRUGS (2)
  1. ALEVE-D SINUS + COLD [Suspect]
     Indication: NASOPHARYNGITIS
     Dosage: 1 DF, BID
     Route: 048
     Dates: start: 20110213, end: 20110214
  2. ALEVE-D SINUS + COLD [Suspect]
     Dosage: 1 DF, BID
     Route: 048
     Dates: start: 20110213, end: 20110214

REACTIONS (1)
  - PRURITUS GENERALISED [None]
